FAERS Safety Report 5480353-6 (Version None)
Quarter: 2007Q4

REPORT INFORMATION
  Report Type: 
  Country: None (occurrence: None)
  Receive Date: 20071009
  Receipt Date: 20070928
  Transmission Date: 20080405
  Serious: Yes (Other)
  Sender: FDA-Public Use
  Company Number: DE-ROCHE-522154

PATIENT
  Sex: Female

DRUGS (2)
  1. ROFERON-A [Suspect]
     Route: 065
  2. PUVASORALEN [Suspect]
     Dosage: SYSTEMIC PUVA (PSORALENS PLUS UV-A) THERAPY
     Route: 065

REACTIONS (1)
  - THERMAL BURN [None]
